FAERS Safety Report 15286533 (Version 4)
Quarter: 2019Q1

REPORT INFORMATION
  Report Type: Report from Study
  Country: US (occurrence: US)
  Receive Date: 20180816
  Receipt Date: 20190207
  Transmission Date: 20190417
  Serious: Yes (Hospitalization)
  Sender: FDA-Public Use
  Company Number: US-ACTELION-A-NJ2017-155319

PATIENT
  Age: 69 Year
  Sex: Female
  Weight: 85.71 kg

DRUGS (5)
  1. COUMADIN [Concomitant]
     Active Substance: WARFARIN SODIUM
  2. TRACLEER [Suspect]
     Active Substance: BOSENTAN
     Indication: PULMONARY ARTERIAL HYPERTENSION
     Dosage: 125 MG, BID
     Route: 048
  3. REMODULIN [Concomitant]
     Active Substance: TREPROSTINIL
  4. NIFEDIPINE. [Concomitant]
     Active Substance: NIFEDIPINE
  5. REVATIO [Concomitant]
     Active Substance: SILDENAFIL CITRATE

REACTIONS (7)
  - Transaminases increased [Unknown]
  - Colon cancer [Unknown]
  - Mastectomy [Unknown]
  - Inappropriate schedule of product administration [Unknown]
  - Hospitalisation [Unknown]
  - Abdominal pain [Unknown]
  - Abdominal pain upper [Unknown]
